FAERS Safety Report 24465205 (Version 1)
Quarter: 2024Q4

REPORT INFORMATION
  Report Type: Report from Study
  Country: US (occurrence: US)
  Receive Date: 20241018
  Receipt Date: 20241018
  Transmission Date: 20250115
  Serious: No
  Sender: ROCHE
  Company Number: US-ROCHE-3517781

PATIENT
  Age: 66 Year
  Sex: Female

DRUGS (24)
  1. XOLAIR [Suspect]
     Active Substance: OMALIZUMAB
     Indication: Urticaria
     Dosage: DATE OF SERVICE 10/MAR/2023, 07/APR/2023, 05/MAY/2023, 13/JUN/2023, 15/AUG/2023, 12/SEP/2023, 07NOV/
     Route: 058
     Dates: start: 20231205, end: 20231231
  2. UNIVER [Concomitant]
  3. AIMOVIG [Concomitant]
     Active Substance: ERENUMAB-AOOE
  4. PRINIVIL [Concomitant]
     Active Substance: LISINOPRIL
  5. ZESTRIL [Concomitant]
     Active Substance: LISINOPRIL
  6. IMITREX [Concomitant]
     Active Substance: SUMATRIPTAN SUCCINATE
  7. NORVASC [Concomitant]
     Active Substance: AMLODIPINE BESYLATE
  8. PREVACID [Concomitant]
     Active Substance: LANSOPRAZOLE
  9. FLOXIUM [LEVOFLOXACIN] [Concomitant]
  10. SYNTHROID [Concomitant]
     Active Substance: LEVOTHYROXINE SODIUM
  11. FLONASE [Concomitant]
     Active Substance: FLUTICASONE PROPIONATE
  12. WAL DRYL [Concomitant]
  13. ZOFRAN [Concomitant]
     Active Substance: ONDANSETRON HYDROCHLORIDE
  14. ZYRTEC [Concomitant]
     Active Substance: CETIRIZINE HYDROCHLORIDE
  15. SINGULAIR [Concomitant]
     Active Substance: MONTELUKAST SODIUM
  16. VITAMIN D3 [Concomitant]
     Active Substance: CHOLECALCIFEROL
  17. OSCAL [CALCIUM CARBONATE] [Concomitant]
  18. PATANOL [Concomitant]
     Active Substance: OLOPATADINE HYDROCHLORIDE
  19. ARTIFICIAL TEARS [CARMELLOSE SODIUM] [Concomitant]
  20. PREMARIN [Concomitant]
     Active Substance: ESTROGENS, CONJUGATED
  21. ALLEGRA [Concomitant]
     Active Substance: FEXOFENADINE HYDROCHLORIDE
  22. KENALOG [Concomitant]
     Active Substance: TRIAMCINOLONE ACETONIDE
  23. SODIUM CHLORIDE [Concomitant]
     Active Substance: SODIUM CHLORIDE
  24. DOCONEXENT\ICOSAPENT [Concomitant]
     Active Substance: DOCONEXENT\ICOSAPENT

REACTIONS (2)
  - Off label use [Unknown]
  - No adverse event [Unknown]
